FAERS Safety Report 7669296-7 (Version None)
Quarter: 2011Q3

REPORT INFORMATION
  Report Type: 
  Country: None (occurrence: None)
  Receive Date: 20110808
  Receipt Date: 20110802
  Transmission Date: 20111222
  Serious: Yes (Other)
  Sender: FDA-Public Use
  Company Number: PHHY2011CA64997

PATIENT
  Sex: Female

DRUGS (2)
  1. ZOLEDRONOC ACID [Suspect]
     Dosage: UNK UKN, UNK
     Route: 042
     Dates: start: 20110701
  2. ZOLEDRONOC ACID [Suspect]
     Dosage: UNK
     Route: 042
     Dates: start: 20100728

REACTIONS (5)
  - THIRST [None]
  - NASOPHARYNGITIS [None]
  - HYPOGLYCAEMIA [None]
  - ASTHENIA [None]
  - MALAISE [None]
